FAERS Safety Report 13092077 (Version 1)
Quarter: 2017Q1

REPORT INFORMATION
  Report Type: Spontaneous
  Country: US (occurrence: US)
  Receive Date: 20170105
  Receipt Date: 20170105
  Transmission Date: 20170428
  Serious: No
  Sender: FDA-Public Use
  Company Number: None

PATIENT
  Age: 66 Year
  Sex: Female
  Weight: 124 kg

DRUGS (1)
  1. LEVOFLOXACIN 750MG [Suspect]
     Active Substance: LEVOFLOXACIN
     Indication: URINARY TRACT INFECTION
     Dosage: 750MG X 1 IV
     Route: 042
     Dates: start: 20061016

REACTIONS (3)
  - Injection site rash [None]
  - Infusion related reaction [None]
  - Pain in extremity [None]

NARRATIVE: CASE EVENT DATE: 20161016
